FAERS Safety Report 7733052-1 (Version None)
Quarter: 2011Q3

REPORT INFORMATION
  Report Type: 
  Country: None (occurrence: None)
  Receive Date: 20110907
  Receipt Date: 20110902
  Transmission Date: 20111222
  Serious: No
  Sender: FDA-Public Use
  Company Number: US-PFIZER INC-2011206106

PATIENT
  Sex: Female
  Weight: 90.703 kg

DRUGS (1)
  1. PRISTIQ [Suspect]
     Indication: PAIN
     Dosage: 50 MG, DAILY
     Route: 048
     Dates: start: 20110701, end: 20110818

REACTIONS (2)
  - INSOMNIA [None]
  - DECREASED APPETITE [None]
